FAERS Safety Report 8077365-5 (Version None)
Quarter: 2012Q1

REPORT INFORMATION
  Report Type: 
  Country: None (occurrence: None)
  Receive Date: 20120127
  Receipt Date: 20120125
  Transmission Date: 20120608
  Serious: No
  Sender: FDA-Public Use
  Company Number: US-PFIZER INC-2012017731

PATIENT
  Sex: Female
  Weight: 98.866 kg

DRUGS (4)
  1. CELEXA [Concomitant]
     Indication: DEPRESSION
  2. CHANTIX [Suspect]
     Dosage: 1 MG, 2X/DAY
     Route: 048
     Dates: start: 20120101
  3. CHANTIX [Suspect]
     Indication: SMOKING CESSATION THERAPY
     Dosage: 0.5 MG, DAILY
     Route: 048
     Dates: start: 20120115, end: 20120101
  4. CELEXA [Concomitant]
     Indication: ANGER
     Dosage: 40 MG, DAILY

REACTIONS (4)
  - ABNORMAL BEHAVIOUR [None]
  - SLEEP DISORDER [None]
  - ABNORMAL DREAMS [None]
  - NAIL DISORDER [None]
